FAERS Safety Report 12485788 (Version 1)
Quarter: 2016Q2

REPORT INFORMATION
  Report Type: Spontaneous
  Country: US (occurrence: US)
  Receive Date: 20160621
  Receipt Date: 20160621
  Transmission Date: 20160815
  Serious: No
  Sender: FDA-Public Use
  Company Number: US-LPDUSPRD-20160263

PATIENT
  Age: 30 Year
  Sex: Female

DRUGS (2)
  1. CYANOCOBALAMIN INJECTION, USP (0032-25) [Suspect]
     Active Substance: CYANOCOBALAMIN
     Dosage: 2 CC
     Route: 051
  2. CYMBALTA [Concomitant]
     Active Substance: DULOXETINE HYDROCHLORIDE
     Dosage: 50 MG DAILY
     Route: 048

REACTIONS (1)
  - Acne [Not Recovered/Not Resolved]
